FAERS Safety Report 14730025 (Version 1)
Quarter: 2018Q2

REPORT INFORMATION
  Report Type: Spontaneous
  Country: US (occurrence: US)
  Receive Date: 20180402
  Receipt Date: 20180402
  Transmission Date: 20180711
  Serious: No
  Sender: FDA-Public Use
  Company Number: None

PATIENT

DRUGS (1)
  1. TELMISARTAN. [Suspect]
     Active Substance: TELMISARTAN

REACTIONS (6)
  - Abdominal pain upper [None]
  - Back pain [None]
  - Asthenia [None]
  - Flatulence [None]
  - Dizziness [None]
  - Myalgia [None]
